FAERS Safety Report 14539562 (Version 11)
Quarter: 2019Q2

REPORT INFORMATION
  Report Type: Report from Study
  Country: CN (occurrence: CN)
  Receive Date: 20180216
  Receipt Date: 20190626
  Transmission Date: 20190711
  Serious: Yes (Death, Hospitalization)
  Sender: FDA-Public Use
  Company Number: CN-EISAI MEDICAL RESEARCH-EC-2018-036060

PATIENT
  Age: 65 Year
  Sex: Female
  Weight: 49.1 kg

DRUGS (6)
  1. LENVATINIB [Suspect]
     Active Substance: LENVATINIB
     Route: 048
     Dates: start: 20180221, end: 2018
  2. NIFEDIPINE. [Concomitant]
     Active Substance: NIFEDIPINE
  3. MAGNESIUM SULFATE. [Concomitant]
     Active Substance: MAGNESIUM SULFATE
  4. NITROGLYCERINE [Concomitant]
     Active Substance: NITROGLYCERIN
  5. IXERIS SONCHIFOLIA HANCE [Concomitant]
  6. LENVATINIB [Suspect]
     Active Substance: LENVATINIB
     Indication: PAPILLARY THYROID CANCER
     Route: 048
     Dates: start: 20180103, end: 20180131

REACTIONS (4)
  - Hypoproteinaemia [Recovered/Resolved]
  - Altered state of consciousness [Recovered/Resolved]
  - Cardiogenic shock [Fatal]
  - Cardiac failure [Not Recovered/Not Resolved]

NARRATIVE: CASE EVENT DATE: 20180209
